FAERS Safety Report 21920078 (Version 1)
Quarter: 2023Q1

REPORT INFORMATION
  Report Type: Spontaneous
  Country: US (occurrence: None)
  Receive Date: 20230127
  Receipt Date: 20230127
  Transmission Date: 20230418
  Serious: Yes (Other)
  Sender: FDA-Public Use
  Company Number: None

PATIENT
  Age: 75 Year
  Sex: Male
  Weight: 97.2 kg

DRUGS (2)
  1. TYLENOL PM [Suspect]
     Active Substance: ACETAMINOPHEN\DIPHENHYDRAMINE
     Dosage: OTHER QUANTITY : 1 TABLET(S);?FREQUENCY : AT BEDTIME;?
     Route: 048
     Dates: start: 20230118, end: 20230126
  2. TYLENOL EXTRA STRENGTH [Suspect]
     Active Substance: ACETAMINOPHEN
     Indication: Hip arthroplasty
     Dosage: OTHER QUANTITY : 2 CAPSULE(S);?FREQUENCY : EVERY 6 HOURS;?
     Route: 048
     Dates: start: 20230119, end: 20230125

REACTIONS (5)
  - Abnormal dreams [None]
  - Insomnia [None]
  - Sleep terror [None]
  - Screaming [None]
  - Asphyxia [None]

NARRATIVE: CASE EVENT DATE: 20230125
